FAERS Safety Report 23014367 (Version 1)
Quarter: 2023Q4

REPORT INFORMATION
  Report Type: Spontaneous
  Country: US (occurrence: US)
  Receive Date: 20231002
  Receipt Date: 20231002
  Transmission Date: 20240110
  Serious: Yes (Other)
  Sender: FDA-Public Use
  Company Number: US-CATALYST PHARMACEUTICALS, INC-US-CATA-23-00557

PATIENT
  Sex: Female

DRUGS (4)
  1. FIRDAPSE [Suspect]
     Active Substance: AMIFAMPRIDINE PHOSPHATE
     Indication: Myasthenic syndrome
     Dosage: 1 TABLET THREE TIMES PER DAY AND MAY INCREASE TO 2 TABLETS AFTER 2 WEEKS
     Route: 048
     Dates: start: 20230804, end: 202308
  2. FIRDAPSE [Suspect]
     Active Substance: AMIFAMPRIDINE PHOSPHATE
     Dosage: UP TO 2 TABLETS THREE TIMES PER DAY
     Route: 048
     Dates: start: 20230819
  3. PREDNISONE [Concomitant]
     Active Substance: PREDNISONE
     Indication: Product used for unknown indication
     Dosage: 15 MG DAILY
     Route: 065
  4. VITAMINS NOS [Concomitant]
     Active Substance: VITAMINS
     Indication: Product used for unknown indication
     Dosage: 10,000 UNITS DAILY
     Route: 065

REACTIONS (1)
  - Jaw cyst [Not Recovered/Not Resolved]

NARRATIVE: CASE EVENT DATE: 20230101
